FAERS Safety Report 13945816 (Version 1)
Quarter: 2017Q3

REPORT INFORMATION
  Report Type: Spontaneous
  Country: CN (occurrence: CN)
  Receive Date: 20170907
  Receipt Date: 20170907
  Transmission Date: 20171128
  Serious: Yes (Other)
  Sender: FDA-Public Use
  Company Number: CN-BAYER-2017-164961

PATIENT
  Age: 87 Year
  Sex: Male

DRUGS (1)
  1. BAYASPIRIN 100 MG [Suspect]
     Active Substance: ASPIRIN
     Indication: DRUG THERAPY
     Dosage: 100 MG, QD
     Route: 041
     Dates: start: 20160203, end: 20170622

REACTIONS (3)
  - Tongue haemorrhage [Unknown]
  - Thrombocytopenic purpura [Unknown]
  - Mouth haemorrhage [Unknown]

NARRATIVE: CASE EVENT DATE: 20170623
